FAERS Safety Report 10247435 (Version 13)
Quarter: 2016Q2

REPORT INFORMATION
  Report Type: Spontaneous
  Country: US (occurrence: US)
  Receive Date: 20140619
  Receipt Date: 20160630
  Transmission Date: 20160815
  Serious: Yes (Hospitalization, Other)
  Sender: FDA-Public Use
  Company Number: US-ACTELION-A-US2014-100049

PATIENT
  Age: 59 Year
  Sex: Male
  Weight: 87.98 kg

DRUGS (16)
  1. VELETRI [Suspect]
     Active Substance: EPOPROSTENOL
     Indication: PULMONARY ARTERIAL HYPERTENSION
     Dosage: 114 NG/KG, PER MIN
     Route: 042
     Dates: start: 20100127
  2. TRACLEER [Suspect]
     Active Substance: BOSENTAN
     Indication: PULMONARY ARTERIAL HYPERTENSION
     Route: 048
  3. IODINE. [Concomitant]
     Active Substance: IODINE
  4. OXYGEN. [Concomitant]
     Active Substance: OXYGEN
  5. VITAMIN E [Concomitant]
     Active Substance: .ALPHA.-TOCOPHEROL
     Dosage: UNK
     Dates: start: 201101
  6. REVATIO [Suspect]
     Active Substance: SILDENAFIL CITRATE
     Indication: PULMONARY HYPERTENSION
     Dosage: 20 MG, TID
     Route: 048
     Dates: start: 201001
  7. ADCIRCA [Concomitant]
     Active Substance: TADALAFIL
  8. COUMADIN [Concomitant]
     Active Substance: WARFARIN SODIUM
     Dosage: 10 MG, 1 DAY/WK
  9. COUMADIN [Concomitant]
     Active Substance: WARFARIN SODIUM
     Dosage: 7.5 MG, 6 DAYS/WK
     Dates: start: 2015
  10. ASPIRIN. [Concomitant]
     Active Substance: ASPIRIN
  11. MULTIVITAMIN [Concomitant]
     Active Substance: VITAMINS
     Dosage: UNK
     Dates: start: 201001
  12. IRON [Concomitant]
     Active Substance: IRON
     Dosage: UNK
     Dates: start: 201101
  13. LETAIRIS [Concomitant]
     Active Substance: AMBRISENTAN
     Dosage: UNK
     Dates: start: 201101
  14. VELETRI [Suspect]
     Active Substance: EPOPROSTENOL
     Dosage: 115 NG/KG, PER MIN
     Route: 042
  15. CHLORHEXIDINE [Concomitant]
     Active Substance: CHLORHEXIDINE
  16. VITAMIN D [Concomitant]
     Active Substance: CHOLECALCIFEROL

REACTIONS (17)
  - Device related thrombosis [Recovered/Resolved]
  - Anticoagulation drug level increased [Unknown]
  - Catheter site infection [Recovered/Resolved]
  - Malaise [Recovered/Resolved]
  - Catheter site erythema [Recovered/Resolved]
  - Device occlusion [Recovered/Resolved]
  - Catheter placement [Recovered/Resolved]
  - Decreased appetite [Recovered/Resolved]
  - Weight decreased [Recovered/Resolved]
  - Catheter site discharge [Recovered/Resolved]
  - Central venous catheterisation [Unknown]
  - Dyspnoea [Unknown]
  - Device alarm issue [Recovered/Resolved]
  - Haemorrhage [Unknown]
  - Hip fracture [Recovering/Resolving]
  - Skin irritation [Unknown]
  - Arthralgia [Recovering/Resolving]

NARRATIVE: CASE EVENT DATE: 20140604
